FAERS Safety Report 18914937 (Version 1)
Quarter: 2021Q1

REPORT INFORMATION
  Report Type: Spontaneous
  Country: US (occurrence: US)
  Receive Date: 20210219
  Receipt Date: 20210219
  Transmission Date: 20210420
  Serious: No
  Sender: FDA-Public Use
  Company Number: US-SA-2021SA055514

PATIENT
  Age: 65 Year
  Sex: Female

DRUGS (1)
  1. CAPRELSA [Suspect]
     Active Substance: VANDETANIB
     Indication: THYROID CANCER
     Dosage: 200 MG DAILY FOR 6 DAYS ON TO DAY OFF
     Route: 048
     Dates: start: 20200223

REACTIONS (2)
  - Product dose omission issue [Unknown]
  - Neck deformity [Unknown]

NARRATIVE: CASE EVENT DATE: 202101
